FAERS Safety Report 21056033 (Version 1)
Quarter: 2022Q3

REPORT INFORMATION
  Report Type: Report from Study
  Country: IT (occurrence: IT)
  Receive Date: 20220708
  Receipt Date: 20220708
  Transmission Date: 20221027
  Serious: Yes (Other)
  Sender: FDA-Public Use
  Company Number: IT-SUN PHARMACEUTICAL INDUSTRIES LTD-2022R1-343693

PATIENT

DRUGS (3)
  1. DOXORUBICIN HYDROCHLORIDE [Suspect]
     Active Substance: DOXORUBICIN HYDROCHLORIDE
     Indication: Plasma cell myeloma refractory
     Dosage: UNK (30MG/MQ ON DAY 1 OF THE CYCLE)
     Route: 042
  2. LENALIDOMIDE [Suspect]
     Active Substance: LENALIDOMIDE
     Indication: Plasma cell myeloma refractory
     Dosage: UNK (25 MG/DIE, ON DAYS 1 THROUGH 21)
     Route: 048
  3. DEXAMETHASONE [Suspect]
     Active Substance: DEXAMETHASONE
     Indication: Plasma cell myeloma refractory
     Dosage: UNK (20 MG/DIE, ON DAYS 1, 8, 15, 22 OF A 28 DAYS CYCLE FOR 6 CYCLES)
     Route: 065

REACTIONS (1)
  - Deep vein thrombosis [Unknown]
